FAERS Safety Report 8310059-7 (Version None)
Quarter: 2012Q2

REPORT INFORMATION
  Report Type: 
  Country: None (occurrence: None)
  Receive Date: 20120423
  Receipt Date: 20120410
  Transmission Date: 20120825
  Serious: Yes (Death)
  Sender: FDA-Public Use
  Company Number: UTC-017553

PATIENT
  Age: 77 Year
  Sex: Male
  Weight: 100 kg

DRUGS (1)
  1. TYVASO [Suspect]
     Indication: HYPERTENSION
     Dosage: 18-96 MICROGRAMS, INHALATION
     Route: 055
     Dates: start: 20101021

REACTIONS (1)
  - DEATH [None]
